FAERS Safety Report 8976925 (Version 1)
Quarter: 2012Q4

REPORT INFORMATION
  Report Type: 
  Country: US (occurrence: US)
  Receive Date: 20121220
  Receipt Date: 20121220
  Transmission Date: 20130627
  Serious: Yes (Hospitalization)
  Sender: FDA-Public Use
  Company Number: US-ACTELION-A-US2012-75264

PATIENT
  Age: 62 Year
  Sex: Female

DRUGS (4)
  1. TRACLEER [Suspect]
     Indication: PULMONARY ARTERIAL HYPERTENSION
     Dosage: UNK
     Route: 048
  2. ADCIRCA [Concomitant]
  3. TYVASO [Concomitant]
  4. COUMADIN [Concomitant]

REACTIONS (11)
  - Haemorrhage [Unknown]
  - Diarrhoea [Unknown]
  - Pyrexia [Recovered/Resolved]
  - Fluid retention [Unknown]
  - Palpitations [Unknown]
  - Abdominal pain upper [Unknown]
  - Bronchitis [Recovered/Resolved]
  - Oxygen saturation decreased [Recovered/Resolved]
  - Nasopharyngitis [Recovered/Resolved]
  - Malaise [Unknown]
  - Haemoptysis [Recovered/Resolved]
